FAERS Safety Report 7120382-X (Version None)
Quarter: 2010Q4

REPORT INFORMATION
  Report Type: 
  Country: None (occurrence: None)
  Receive Date: 20101124
  Receipt Date: 20101117
  Transmission Date: 20110411
  Serious: Yes (Other)
  Sender: FDA-Public Use
  Company Number: US-BIOGENIDEC-2010BI040514

PATIENT
  Sex: Female

DRUGS (3)
  1. AVONEX [Suspect]
     Indication: MULTIPLE SCLEROSIS
     Route: 030
     Dates: start: 20020101, end: 20030101
  2. LYRICA [Concomitant]
     Indication: PAIN
  3. NEURONTIN [Concomitant]
     Indication: PAIN

REACTIONS (2)
  - FIBROMYALGIA [None]
  - TRANSIENT ISCHAEMIC ATTACK [None]
